FAERS Safety Report 5789120-7 (Version None)
Quarter: 2008Q2

REPORT INFORMATION
  Report Type: 
  Country: None (occurrence: None)
  Receive Date: 20080626
  Receipt Date: 20080617
  Transmission Date: 20081010
  Serious: Yes (Hospitalization)
  Sender: FDA-Public Use
  Company Number: US-JNJFOC-20080604578

PATIENT
  Sex: Female
  Weight: 81.65 kg

DRUGS (2)
  1. LEVAQUIN [Suspect]
     Route: 048
  2. LEVAQUIN [Suspect]
     Indication: PNEUMONIA
     Route: 048

REACTIONS (5)
  - ARTHRALGIA [None]
  - JOINT SWELLING [None]
  - LYMPHADENOPATHY [None]
  - OEDEMA PERIPHERAL [None]
  - TENDONITIS [None]
